FAERS Safety Report 7054776-8 (Version None)
Quarter: 2010Q4

REPORT INFORMATION
  Report Type: 
  Country: None (occurrence: None)
  Receive Date: 20101020
  Receipt Date: 20101007
  Transmission Date: 20110411
  Serious: Yes (Other)
  Sender: FDA-Public Use
  Company Number: GB-MYLANLABS-2010S1018576

PATIENT
  Age: 48 Year
  Sex: Female

DRUGS (4)
  1. RISPERIDONE [Suspect]
     Indication: PSYCHOTIC DISORDER
  2. RISPERIDONE [Suspect]
  3. RISPERIDONE [Suspect]
  4. LORAZEPAM [Concomitant]
     Indication: PSYCHOTIC DISORDER

REACTIONS (2)
  - DYSPHEMIA [None]
  - EXTRAPYRAMIDAL DISORDER [None]
